FAERS Safety Report 12178086 (Version 1)
Quarter: 2016Q1

REPORT INFORMATION
  Report Type: Spontaneous
  Country: US (occurrence: None)
  Receive Date: 20160314
  Receipt Date: 20160314
  Transmission Date: 20160526
  Serious: Yes (Disabling)
  Sender: FDA-Public Use
  Company Number: None

PATIENT
  Age: 76 Year
  Sex: Female
  Weight: 63.5 kg

DRUGS (10)
  1. LOSARTAN. [Concomitant]
     Active Substance: LOSARTAN
  2. HYDRALAZINE [Concomitant]
     Active Substance: HYDRALAZINE HYDROCHLORIDE
  3. LEVOTHYROXIN [Concomitant]
     Active Substance: LEVOTHYROXINE
  4. MULTIVITAMIN [Concomitant]
     Active Substance: VITAMINS
  5. CARVEDILOL. [Concomitant]
     Active Substance: CARVEDILOL
  6. PREMARIN VAGINAL [Concomitant]
     Active Substance: ESTROGENS, CONJUGATED
  7. VITAMIN D [Concomitant]
     Active Substance: CHOLECALCIFEROL
  8. AMOXICILLIN AND CLAVULANATE POTASSIUM [Suspect]
     Active Substance: AMOXICILLIN\CLAVULANATE POTASSIUM
     Indication: COUGH
     Dosage: 875MG 14 PILLS TWICE DAILY
     Route: 048
     Dates: start: 20160122, end: 20160124
  9. CALCIUM /MAGNESIUM [Concomitant]
  10. CEPHALEXIN. [Suspect]
     Active Substance: CEPHALEXIN

REACTIONS (5)
  - Dysgeusia [None]
  - Clostridium difficile colitis [None]
  - Diarrhoea [None]
  - No therapeutic response [None]
  - Fungal infection [None]

NARRATIVE: CASE EVENT DATE: 20160124
